FAERS Safety Report 7560331-3 (Version None)
Quarter: 2011Q2

REPORT INFORMATION
  Report Type: 
  Country: None (occurrence: None)
  Receive Date: 20110621
  Receipt Date: 20110615
  Transmission Date: 20111010
  Serious: Yes (Hospitalization)
  Sender: FDA-Public Use
  Company Number: US-GILEAD-2011-0040305

PATIENT
  Sex: Male

DRUGS (3)
  1. COUMADIN [Concomitant]
  2. LETAIRIS [Suspect]
     Indication: HEART DISEASE CONGENITAL
  3. LETAIRIS [Suspect]
     Indication: PULMONARY HYPERTENSION
     Route: 048
     Dates: start: 20090504

REACTIONS (3)
  - HAEMORRHAGE INTRACRANIAL [None]
  - HEAD INJURY [None]
  - SYNCOPE [None]
